FAERS Safety Report 13334070 (Version 5)
Quarter: 2018Q1

REPORT INFORMATION
  Report Type: Spontaneous
  Country: US (occurrence: US)
  Receive Date: 20170314
  Receipt Date: 20180215
  Transmission Date: 20180508
  Serious: Yes (Death, Hospitalization, Other)
  Sender: FDA-Public Use
  Company Number: US-PFIZER INC-2017101869

PATIENT
  Age: 55 Year
  Sex: Male

DRUGS (2)
  1. INLYTA [Suspect]
     Active Substance: AXITINIB
     Indication: RENAL CELL CARCINOMA
     Dosage: 5 MG, 2X/DAY (TAKE 1 TABLET BY MOUTH 2 TIMES DAILY)
     Route: 048
     Dates: start: 201510, end: 201605
  2. INLYTA [Suspect]
     Active Substance: AXITINIB
     Dosage: 5 MG, 2X/DAY (SWALLOW WHOLE WITH A FULL GLASS OF WATER; DO NOT CHEW OR CRUSH. TAKE WHOLE WITH WATER)
     Route: 048
     Dates: start: 201605

REACTIONS (5)
  - Death [Fatal]
  - Clostridium difficile infection [Unknown]
  - Pulmonary haemorrhage [Unknown]
  - Myocardial infarction [Unknown]
  - Diarrhoea [Recovered/Resolved]

NARRATIVE: CASE EVENT DATE: 20180129
